FAERS Safety Report 16782026 (Version 2)
Quarter: 2020Q1

REPORT INFORMATION
  Report Type: Report from Study
  Country: BR (occurrence: BR)
  Receive Date: 20190906
  Receipt Date: 20200115
  Transmission Date: 20200409
  Serious: Yes (Other)
  Sender: FDA-Public Use
  Company Number: BR-JNJFOC-20190839521

PATIENT
  Sex: Female
  Weight: 65 kg

DRUGS (1)
  1. STELARA [Suspect]
     Active Substance: USTEKINUMAB
     Indication: CROHN^S DISEASE
     Route: 058
     Dates: start: 20190122

REACTIONS (2)
  - Chikungunya virus infection [Not Recovered/Not Resolved]
  - Hysterectomy [Not Recovered/Not Resolved]

NARRATIVE: CASE EVENT DATE: 2019
